FAERS Safety Report 20861567 (Version 1)
Quarter: 2022Q2

REPORT INFORMATION
  Report Type: Spontaneous
  Country: US (occurrence: None)
  Receive Date: 20220520
  Receipt Date: 20220520
  Transmission Date: 20220721
  Serious: No
  Sender: FDA-Public Use
  Company Number: None

PATIENT
  Age: 26 Year
  Sex: Female

DRUGS (2)
  1. MYALEPT [Suspect]
     Active Substance: METRELEPTIN
     Indication: Lipodystrophy acquired
     Dosage: FREQUENCY : DAILY;?
     Route: 058
     Dates: start: 20190803
  2. BACTERIOSTATIC WATER [Concomitant]
     Active Substance: WATER
     Dates: start: 20190803

REACTIONS (4)
  - Syringe issue [None]
  - Skin texture abnormal [None]
  - Device difficult to use [None]
  - Wrong technique in device usage process [None]

NARRATIVE: CASE EVENT DATE: 20220520
